FAERS Safety Report 13162218 (Version 4)
Quarter: 2017Q3

REPORT INFORMATION
  Report Type: Spontaneous
  Country: US (occurrence: US)
  Receive Date: 20170130
  Receipt Date: 20170731
  Transmission Date: 20171127
  Serious: Yes (Death, Hospitalization)
  Sender: FDA-Public Use
  Company Number: US-PFIZER INC-2017038696

PATIENT
  Age: 75 Year
  Sex: Female

DRUGS (3)
  1. IBRANCE [Suspect]
     Active Substance: PALBOCICLIB
     Indication: BREAST CANCER METASTATIC
     Dosage: 125 MG, CYCLIC (21 DAYS THEN STOP 7 DAYS) (125MG DAILY X 21DAYS ON 7DAY OFF)
     Route: 048
     Dates: start: 201608
  2. FASLODEX [Concomitant]
     Active Substance: FULVESTRANT
     Indication: BREAST CANCER
     Dosage: 500 MG, MONTHLY (FELT IT WAS EVERY 2 WEEKS LATER IT WILL BE ONCE A MONTH)
     Route: 030
     Dates: start: 201701
  3. LETROZOLE. [Concomitant]
     Active Substance: LETROZOLE
     Indication: BREAST CANCER
     Dosage: 2.5 MG, 1X/DAY
     Route: 048
     Dates: start: 201608, end: 201701

REACTIONS (9)
  - Weight decreased [Not Recovered/Not Resolved]
  - Asthenia [Unknown]
  - Alopecia [Not Recovered/Not Resolved]
  - Fatigue [Not Recovered/Not Resolved]
  - Oral mucosal blistering [Recovered/Resolved]
  - Neoplasm progression [Fatal]
  - Ageusia [Recovered/Resolved]
  - Urine ketone body present [Unknown]
  - Stomatitis [Unknown]

NARRATIVE: CASE EVENT DATE: 201608
